FAERS Safety Report 17115469 (Version 1)
Quarter: 2019Q4

REPORT INFORMATION
  Report Type: Spontaneous
  Country: SE (occurrence: SE)
  Receive Date: 20191205
  Receipt Date: 20191205
  Transmission Date: 20200122
  Serious: Yes (Hospitalization)
  Sender: FDA-Public Use
  Company Number: SE-PFIZER INC-2019521808

PATIENT
  Age: 16 Year
  Sex: Female

DRUGS (3)
  1. VENLAFAXINE HCL [Suspect]
     Active Substance: VENLAFAXINE HYDROCHLORIDE
     Dosage: 1.5 G, UNK
     Route: 048
     Dates: start: 20180416, end: 20180416
  2. LERGIGAN [PROMETHAZINE HYDROCHLORIDE] [Suspect]
     Active Substance: PROMETHAZINE HYDROCHLORIDE
     Dosage: 2 G, UNK
     Route: 048
     Dates: start: 20180416, end: 20180416
  3. MELATONIN [Suspect]
     Active Substance: MELATONIN
     Dosage: UNK (^LESSER AMOUNT^)
     Route: 048
     Dates: start: 20180416, end: 20180416

REACTIONS (9)
  - Pallor [Unknown]
  - Somnolence [Unknown]
  - Hypotension [Unknown]
  - Muscle twitching [Unknown]
  - Tachycardia [Unknown]
  - Intentional overdose [Unknown]
  - Electrocardiogram T wave abnormal [Unknown]
  - Intentional self-injury [Unknown]
  - Fatigue [Unknown]

NARRATIVE: CASE EVENT DATE: 20180417
